FAERS Safety Report 9468217 (Version 2)
Quarter: 2013Q4

REPORT INFORMATION
  Report Type: Spontaneous
  Country: JP (occurrence: None)
  Receive Date: 20130816
  Receipt Date: 20131227
  Transmission Date: 20140711
  Serious: Yes (Life-Threatening)
  Sender: FDA-Public Use
  Company Number: 1850132

PATIENT
  Age: 52 Year
  Sex: Male
  Weight: 106 kg

DRUGS (35)
  1. DEXMEDETOMIDINE HYDROCHLORIDE [Suspect]
     Indication: ENDOTRACHEAL INTUBATION
     Dosage: 4 MCG/ML X 5-10 ML/HR, UNKNOWN, INTRAVENOUS (NOT OTHERWISE SPECIFIED)??
     Dates: start: 20110206, end: 20110214
  2. PROPOFOL [Suspect]
     Indication: ENDOTRACHEAL INTUBATION
     Dosage: 1-15 ML/HR INTRAVENOUS (NOT OTHERWISE SPECIFIED)?
     Route: 042
     Dates: start: 20110205, end: 20110209
  3. FENTANYL [Concomitant]
  4. NAFAMOSTAT MESILATE [Concomitant]
  5. MIDAZOLAM [Concomitant]
  6. REPLAS [Concomitant]
  7. LACTATED RINGER^S [Concomitant]
  8. ALL OTHER THERAPEUTIC PRODUCTS [Concomitant]
  9. FULCALIQ [Concomitant]
  10. FAMOTIDINE [Concomitant]
  11. SNICARDIPINE HYDROCHLORIDE [Concomitant]
  12. DILTIAZEM HYDROCHLORIDE [Concomitant]
  13. FUROSEMIDE [Concomitant]
  14. CARPERITIDE [Concomitant]
  15. AMPICILLIN SODIUM W/SULBACTAM SODIUM [Concomitant]
  16. CEFAZOLIN SODIUM [Concomitant]
  17. HYDROCORTISONE SODIUM SUCCINATE [Concomitant]
  18. HEPARIN SODIUM [Concomitant]
  19. LANDILOL HYDROCHLORIDE [Concomitant]
  20. HUMAN RED BLOOD CELLS [Concomitant]
  21. PLASMA [Concomitant]
  22. PLATELET [Concomitant]
  23. HICALIQ [Concomitant]
  24. HYDROXYETHYLSTARCH [Concomitant]
  25. ISOTONIC SODIUM CHLORIDE SOLUTION [Concomitant]
  26. ARGATROBAN [Concomitant]
  27. LANSOPRAZOLE [Concomitant]
  28. PHENYLEPHRINE HYDROCHLORIDE [Concomitant]
  29. NORADRENALINE [Concomitant]
  30. DANTROLENE SODIUM [Concomitant]
  31. CALCIUM GLUCONATE [Concomitant]
  32. MEROPENEM [Concomitant]
  33. VANCOMYCIN HYDROCHLORIDE [Concomitant]
  34. FLURBIPROFEN AXETIL [Concomitant]
  35. HUMAN SERUM ALBUMIN (ALBUMIN HUMAN) INFUSION [Concomitant]

REACTIONS (1)
  - Rhabdomyolysis [None]
